FAERS Safety Report 7116218-3 (Version None)
Quarter: 2010Q4

REPORT INFORMATION
  Report Type: 
  Country: None (occurrence: None)
  Receive Date: 20101122
  Receipt Date: 20101112
  Transmission Date: 20110411
  Serious: Yes (Other)
  Sender: FDA-Public Use
  Company Number: US-ASTRAZENECA-2010SE54179

PATIENT
  Age: 61 Year
  Sex: Female

DRUGS (11)
  1. NEXIUM [Suspect]
     Indication: GASTROOESOPHAGEAL REFLUX PROPHYLAXIS
     Route: 048
     Dates: start: 20010101
  2. PLAQUENIL [Concomitant]
  3. METHOTREXATE [Concomitant]
  4. ACTONEL [Concomitant]
  5. DILANTIN [Concomitant]
  6. PHENOBARBITAL [Concomitant]
  7. ALTACE [Concomitant]
  8. INDERAL [Concomitant]
  9. ASPIRIN [Concomitant]
  10. FOLIC ACID [Concomitant]
  11. VITAMINS [Concomitant]

REACTIONS (4)
  - FALL [None]
  - HIP FRACTURE [None]
  - OSTEOPENIA [None]
  - OSTEOPOROSIS [None]
